FAERS Safety Report 9959866 (Version 1)
Quarter: 2014Q1

REPORT INFORMATION
  Report Type: Spontaneous
  Country: CN (occurrence: None)
  Receive Date: 20140227
  Receipt Date: 20140227
  Transmission Date: 20141002
  Serious: Yes (Hospitalization)
  Sender: FDA-Public Use
  Company Number: ACET20140003

PATIENT
  Age: 24 Year
  Sex: Female

DRUGS (1)
  1. Q-PAP [Suspect]
     Indication: PRODUCT USED FOR UNKNOWN INDICATION
     Dosage: 100 TABS, ONE DOSE, ORAL
     Route: 048

REACTIONS (3)
  - Hepatic failure [None]
  - Toxicity to various agents [None]
  - Exposure via ingestion [None]
